FAERS Safety Report 10266791 (Version 1)
Quarter: 2014Q2

REPORT INFORMATION
  Report Type: Spontaneous
  Country: US (occurrence: US)
  Receive Date: 20140630
  Receipt Date: 20140630
  Transmission Date: 20141212
  Serious: Yes (Hospitalization, Other)
  Sender: FDA-Public Use
  Company Number: US-ABBVIE-14P-163-1252796-00

PATIENT
  Sex: Female
  Weight: 43.13 kg

DRUGS (4)
  1. SYNTHROID [Suspect]
     Indication: HYPOTHYROIDISM
  2. SYNTHROID [Suspect]
     Indication: HYPOTHYROIDISM
  3. SYNTHROID [Suspect]
     Indication: HYPOTHYROIDISM
  4. HYDROCODONE/ACETAMINOPHEN [Concomitant]
     Indication: PRODUCT USED FOR UNKNOWN INDICATION
     Dosage: UNKNOWN

REACTIONS (22)
  - Blood pressure abnormal [Recovered/Resolved]
  - Cardiac murmur [Unknown]
  - Urticaria [Unknown]
  - Abdominal pain upper [Unknown]
  - Hysterectomy [Unknown]
  - Pain [Unknown]
  - Urticaria [Unknown]
  - Drug level decreased [Unknown]
  - Nervousness [Unknown]
  - Weight decreased [Unknown]
  - Tremor [Unknown]
  - Muscular weakness [Unknown]
  - Myalgia [Unknown]
  - Chest pain [Unknown]
  - Weight gain poor [Unknown]
  - Osteoporosis [Unknown]
  - Heart rate increased [Unknown]
  - Panic attack [Unknown]
  - Spinal pain [Not Recovered/Not Resolved]
  - Exostosis [Not Recovered/Not Resolved]
  - Dysgraphia [Not Recovered/Not Resolved]
  - Activities of daily living impaired [Not Recovered/Not Resolved]
